FAERS Safety Report 8795710 (Version 3)
Quarter: 2012Q4

REPORT INFORMATION
  Report Type: 
  Country: US (occurrence: US)
  Receive Date: 20120919
  Receipt Date: 20121015
  Transmission Date: 20130627
  Serious: No
  Sender: FDA-Public Use
  Company Number: US-ASTRAZENECA-2012SE70799

PATIENT
  Age: 58 Year
  Sex: Female

DRUGS (2)
  1. NEXIUM [Suspect]
     Route: 048
  2. RANITIDINE [Concomitant]

REACTIONS (7)
  - Dyspepsia [Unknown]
  - Hiatus hernia [Unknown]
  - Eating disorder [Unknown]
  - Weight decreased [Unknown]
  - Vomiting [Unknown]
  - Gastrointestinal pain [Unknown]
  - Drug dose omission [Unknown]
